FAERS Safety Report 22346165 (Version 1)
Quarter: 2023Q2

REPORT INFORMATION
  Report Type: Spontaneous
  Country: US (occurrence: None)
  Receive Date: 20230519
  Receipt Date: 20230519
  Transmission Date: 20230722
  Serious: Yes (Hospitalization)
  Sender: FDA-Public Use
  Company Number: None

PATIENT
  Age: 62 Year
  Sex: Female
  Weight: 84.46 kg

DRUGS (15)
  1. ROZLYTREK [Suspect]
     Active Substance: ENTRECTINIB
     Indication: Brain neoplasm malignant
     Dosage: FREQUENCY : DAILY;?
     Route: 048
  2. COMPAZINE [Concomitant]
     Active Substance: PROCHLORPERAZINE MALEATE
  3. DECADRON [Concomitant]
     Active Substance: DEXAMETHASONE
  4. DULCOLAX NOS [Concomitant]
     Active Substance: BISACODYL OR DOCUSATE SODIUM
  5. ELIQUIS [Concomitant]
     Active Substance: APIXABAN
  6. GABAPENTIN [Concomitant]
     Active Substance: GABAPENTIN
  7. LACTULOSE [Concomitant]
     Active Substance: LACTULOSE
  8. Macrobid [Concomitant]
  9. VITAMINS [Concomitant]
     Active Substance: VITAMINS
  10. ONDANSETRON [Concomitant]
     Active Substance: ONDANSETRON
  11. Percocet [Concomitant]
  12. SERTRALINE [Concomitant]
     Active Substance: SERTRALINE HYDROCHLORIDE
  13. SILVADENE [Concomitant]
     Active Substance: SILVER SULFADIAZINE
  14. VITAMIN C [Concomitant]
     Active Substance: ASCORBIC ACID
  15. levETIRAetam [Concomitant]

REACTIONS (4)
  - Blood pressure decreased [None]
  - Oxygen saturation decreased [None]
  - White blood cell count decreased [None]
  - Wound infection [None]
